FAERS Safety Report 21897658 (Version 1)
Quarter: 2023Q1

REPORT INFORMATION
  Report Type: Spontaneous
  Country: US (occurrence: None)
  Receive Date: 20230120
  Receipt Date: 20230120
  Transmission Date: 20230418
  Serious: Yes (Other)
  Sender: FDA-Public Use
  Company Number: None

PATIENT
  Age: 7 Year
  Sex: Male
  Weight: 23.4 kg

DRUGS (2)
  1. METHYLPHENIDATE [Suspect]
     Active Substance: METHYLPHENIDATE
     Dosage: FREQUENCY : DAILY;?
     Route: 048
     Dates: start: 20230116, end: 20230118
  2. GUANFACINE [Concomitant]
     Active Substance: GUANFACINE
     Dates: start: 20221201

REACTIONS (2)
  - Agitation [None]
  - Irritability [None]

NARRATIVE: CASE EVENT DATE: 20230118
